FAERS Safety Report 20303678 (Version 1)
Quarter: 2022Q1

REPORT INFORMATION
  Report Type: Spontaneous
  Country: JP (occurrence: JP)
  Receive Date: 20220106
  Receipt Date: 20220106
  Transmission Date: 20220423
  Serious: No
  Sender: FDA-Public Use
  Company Number: JP-LUPIN PHARMACEUTICALS INC.-2021-26288

PATIENT
  Age: 69 Year
  Sex: Female

DRUGS (5)
  1. BETAMETHASONE [Suspect]
     Active Substance: BETAMETHASONE
     Indication: Pemphigus
     Dosage: UNK
     Route: 061
  2. DAPSONE [Suspect]
     Active Substance: DAPSONE
     Indication: Pemphigus
     Dosage: 50 MILLIGRAM, QD
     Route: 048
  3. TETRACYCLINE [Suspect]
     Active Substance: TETRACYCLINE
     Indication: Pemphigus
     Dosage: 500 MILLIGRAM, QD
     Route: 048
  4. NICOTINAMIDE [Suspect]
     Active Substance: NIACINAMIDE
     Indication: Pemphigus
     Dosage: 600 MILLIGRAM, QD
     Route: 048
  5. FEXOFENADINE HYDROCHLORIDE [Concomitant]
     Active Substance: FEXOFENADINE HYDROCHLORIDE
     Indication: Pemphigus
     Dosage: UNK
     Route: 048

REACTIONS (1)
  - Drug eruption [Recovered/Resolved]
